FAERS Safety Report 5227811-7 (Version None)
Quarter: 2007Q1

REPORT INFORMATION
  Report Type: 
  Country: None (occurrence: None)
  Receive Date: 20070202
  Receipt Date: 20070123
  Transmission Date: 20070707
  Serious: Yes (Other)
  Sender: FDA-Public Use
  Company Number: JP-PFIZER INC-2007006631

PATIENT
  Sex: Male

DRUGS (8)
  1. DIFLUCAN [Suspect]
     Indication: OESOPHAGEAL CANDIDIASIS
     Dates: start: 20050730, end: 20051220
  2. KALETRA [Suspect]
     Indication: HIV INFECTION
     Dosage: TEXT:6 CAPSULES
     Route: 048
  3. EPZICOM [Suspect]
     Indication: HIV INFECTION
     Dosage: TEXT:1 TAB.
     Route: 048
  4. ZITHROMAC [Concomitant]
     Dates: start: 20050802, end: 20051220
  5. BACTRIM [Concomitant]
     Route: 048
     Dates: start: 20050805, end: 20060314
  6. LAFUTIDINE [Concomitant]
     Route: 048
  7. FLUMEZIN [Concomitant]
     Route: 048
  8. AMOBAN [Concomitant]
     Route: 048

REACTIONS (2)
  - KAPOSI'S SARCOMA [None]
  - NAUSEA [None]
